FAERS Safety Report 17574789 (Version 9)
Quarter: 2023Q4

REPORT INFORMATION
  Report Type: Spontaneous
  Country: US (occurrence: US)
  Receive Date: 20200324
  Receipt Date: 20231006
  Transmission Date: 20240110
  Serious: Yes (Other)
  Sender: FDA-Public Use
  Company Number: US-GILEAD-2020-0455844

PATIENT
  Age: 23 Year
  Sex: Male
  Weight: 65.76 kg

DRUGS (40)
  1. VIREAD [Suspect]
     Active Substance: TENOFOVIR DISOPROXIL FUMARATE
     Indication: HIV infection
     Dosage: UNK
     Route: 048
     Dates: start: 20130325, end: 201307
  2. VIREAD [Suspect]
     Active Substance: TENOFOVIR DISOPROXIL FUMARATE
     Indication: Acquired immunodeficiency syndrome
  3. TRUVADA [Suspect]
     Active Substance: EMTRICITABINE\TENOFOVIR DISOPROXIL FUMARATE
     Indication: HIV infection
     Dosage: UNK
     Route: 048
     Dates: start: 2010, end: 2013
  4. TRUVADA [Suspect]
     Active Substance: EMTRICITABINE\TENOFOVIR DISOPROXIL FUMARATE
     Dosage: UNK
     Route: 048
     Dates: start: 201307, end: 201505
  5. STRIBILD [Suspect]
     Active Substance: COBICISTAT\ELVITEGRAVIR\EMTRICITABINE\TENOFOVIR DISOPROXIL FUMARATE
     Indication: HIV infection
     Dosage: UNK
     Route: 048
     Dates: start: 201505, end: 20151030
  6. PREZISTA [Concomitant]
     Active Substance: DARUNAVIR ETHANOLATE
  7. ZIAGEN [Concomitant]
     Active Substance: ABACAVIR SULFATE
  8. NORVIR [Concomitant]
     Active Substance: RITONAVIR
  9. INTELENCE [Concomitant]
     Active Substance: ETRAVIRINE
  10. ISENTRESS [Concomitant]
     Active Substance: RALTEGRAVIR POTASSIUM
  11. RETROVIR [Concomitant]
     Active Substance: ZIDOVUDINE
  12. TRIUMEQ [Concomitant]
     Active Substance: ABACAVIR SULFATE\DOLUTEGRAVIR SODIUM\LAMIVUDINE
  13. ABACAVIR [Concomitant]
     Active Substance: ABACAVIR
  14. ACYCLOVIR [Concomitant]
     Active Substance: ACYCLOVIR
  15. ALBUTEROL [Concomitant]
     Active Substance: ALBUTEROL
  16. AZITHROMYCIN ANHYDROUS [Concomitant]
     Active Substance: AZITHROMYCIN ANHYDROUS
  17. CETIRIZINE HYDROCHLORIDE [Concomitant]
     Active Substance: CETIRIZINE HYDROCHLORIDE
  18. CIPROFLOXACIN [Concomitant]
     Active Substance: CIPROFLOXACIN
  19. CLONIDINE [Concomitant]
     Active Substance: CLONIDINE
  20. DAPSONE [Concomitant]
     Active Substance: DAPSONE
  21. DICLOFENAC SODIUM [Concomitant]
     Active Substance: DICLOFENAC\DICLOFENAC SODIUM
  22. FAMOTIDINE [Concomitant]
     Active Substance: FAMOTIDINE
  23. FLUCONAZOLE [Concomitant]
     Active Substance: FLUCONAZOLE
  24. IBUPROFEN [Concomitant]
     Active Substance: IBUPROFEN
  25. LOPERAMIDE [Concomitant]
     Active Substance: LOPERAMIDE
  26. ALLOPURINOL [Concomitant]
     Active Substance: ALLOPURINOL
  27. METRONIDAZOL / NISTATINA [Concomitant]
  28. MEGESTROL ACETATE [Concomitant]
     Active Substance: MEGESTROL ACETATE
  29. MYCOBUTIN [Concomitant]
     Active Substance: RIFABUTIN
  30. NAPROXEN [Concomitant]
     Active Substance: NAPROXEN
  31. OMEPRAZOLE [Concomitant]
     Active Substance: OMEPRAZOLE
  32. PAROXETINE [Concomitant]
     Active Substance: PAROXETINE
  33. PROCHLORPERAZINE EDISYLATE [Concomitant]
     Active Substance: PROCHLORPERAZINE EDISYLATE
  34. PYLERA [Concomitant]
     Active Substance: BISMUTH SUBCITRATE POTASSIUM\METRONIDAZOLE\TETRACYCLINE HYDROCHLORIDE
  35. VALACYCLOVIR [Concomitant]
     Active Substance: VALACYCLOVIR HYDROCHLORIDE
  36. VITAMIN D2 [Concomitant]
     Active Substance: ERGOCALCIFEROL
  37. VITAMIN D3 [Concomitant]
     Active Substance: CHOLECALCIFEROL
  38. DICLOFENAC [Concomitant]
     Active Substance: DICLOFENAC
  39. FLUTICASONE [Concomitant]
     Active Substance: FLUTICASONE
  40. FLOVENT [Concomitant]
     Active Substance: FLUTICASONE PROPIONATE

REACTIONS (18)
  - Chronic kidney disease [Unknown]
  - Osteoporosis [Not Recovered/Not Resolved]
  - Cardiac amyloidosis [Unknown]
  - Myocardial ischaemia [Unknown]
  - Drug resistance [Not Recovered/Not Resolved]
  - Hepatotoxicity [Unknown]
  - Bone density decreased [Not Recovered/Not Resolved]
  - Feeling abnormal [Unknown]
  - Osteopenia [Not Recovered/Not Resolved]
  - Cardiac disorder [Not Recovered/Not Resolved]
  - Emotional distress [Not Recovered/Not Resolved]
  - Anhedonia [Not Recovered/Not Resolved]
  - Economic problem [Not Recovered/Not Resolved]
  - Anxiety [Not Recovered/Not Resolved]
  - Abdominal discomfort [Unknown]
  - Fatigue [Unknown]
  - Pain [Not Recovered/Not Resolved]
  - Flatulence [Unknown]

NARRATIVE: CASE EVENT DATE: 20160209
